FAERS Safety Report 8959864 (Version 2)
Quarter: 2013Q1

REPORT INFORMATION
  Report Type: Spontaneous
  Country: JP (occurrence: JP)
  Receive Date: 20121211
  Receipt Date: 20130118
  Transmission Date: 20140127
  Serious: Yes (Hospitalization)
  Sender: FDA-Public Use
  Company Number: JP-009507513-1212JPN003631

PATIENT
  Age: 57 Year
  Sex: Male
  Weight: 72 kg

DRUGS (5)
  1. NU-LOTAN [Suspect]
     Indication: HYPERTENSION
     Dosage: 1 DF, QD
     Route: 048
     Dates: start: 20121026, end: 20121107
  2. NU-LOTAN [Suspect]
     Dosage: 0.5 MG, QD
     Route: 048
     Dates: start: 20120928, end: 20121025
  3. JI-DABOKU-IPPO [Concomitant]
     Indication: CONTUSION
     Dosage: 2.5 G, TID
     Route: 048
     Dates: start: 20120525, end: 20121107
  4. KAKKON-TO [Concomitant]
     Indication: MUSCULOSKELETAL STIFFNESS
     Dosage: 2.5 G, TID
     Route: 048
     Dates: start: 20121026, end: 20121107
  5. KAKKON-TO [Concomitant]
     Indication: PYREXIA

REACTIONS (8)
  - Hepatic function abnormal [Recovering/Resolving]
  - Aspartate aminotransferase increased [None]
  - Alanine aminotransferase increased [None]
  - Blood lactate dehydrogenase increased [None]
  - Blood alkaline phosphatase increased [None]
  - Pyrexia [None]
  - Chills [None]
  - Ultrasound liver abnormal [None]
